FAERS Safety Report 5866940-1 (Version None)
Quarter: 2008Q3

REPORT INFORMATION
  Report Type: 
  Country: None (occurrence: None)
  Receive Date: 20080828
  Receipt Date: 20080828
  Transmission Date: 20090109
  Serious: Yes (Death)
  Sender: FDA-Public Use
  Company Number: None

PATIENT
  Age: 40 Year
  Sex: Male
  Weight: 35 kg

DRUGS (6)
  1. COVIRO LS 30 (LAMIVUDINE/STAV  INE) [Suspect]
     Indication: HIV INFECTION
     Dosage: 30MG TWICE   DAY
     Dates: start: 20080725, end: 20080807
  2. EFAVIRENZ [Suspect]
     Indication: HIV INFECTION
     Dosage: 600MG ONCE A  AY
     Dates: start: 20080725, end: 20080807
  3. AKURIT 4 [Suspect]
     Indication: TUBERCULOSIS
     Dosage: TWICE A DAY
     Dates: start: 20080530, end: 20080704
  4. AKURIT 4 [Suspect]
     Indication: TUBERCULOSIS
     Dosage: TWICE A DAY
     Dates: start: 20080711, end: 20080806
  5. COTRIMOXAZOLE [Concomitant]
  6. FLUCONAZOLE [Concomitant]

REACTIONS (3)
  - DIARRHOEA [None]
  - NAUSEA [None]
  - PYREXIA [None]
